FAERS Safety Report 4691351-4 (Version None)
Quarter: 2005Q2

REPORT INFORMATION
  Report Type: 
  Country: None (occurrence: None)
  Receive Date: 20050615
  Receipt Date: 20050318
  Transmission Date: 20051028
  Serious: Yes (Hospitalization, Disabling)
  Sender: FDA-Public Use
  Company Number: US-MERCK-0503USA03440

PATIENT
  Age: 64 Year
  Sex: Female

DRUGS (6)
  1. VIOXX [Suspect]
     Indication: ARTHRITIS
     Route: 048
     Dates: start: 20010701, end: 20040901
  2. LOTENSIN [Concomitant]
     Route: 065
  3. ASPIRIN [Concomitant]
     Route: 065
  4. PREMARIN [Concomitant]
     Route: 065
  5. VERAPAMIL HYDROCHLORIDE [Concomitant]
     Route: 065
  6. FOSAMAX [Concomitant]
     Route: 048

REACTIONS (2)
  - GASTRITIS [None]
  - ULCER HAEMORRHAGE [None]
